FAERS Safety Report 12126976 (Version 2)
Quarter: 2016Q1

REPORT INFORMATION
  Report Type: Spontaneous
  Country: JP (occurrence: JP)
  Receive Date: 20160229
  Receipt Date: 20160310
  Transmission Date: 20160526
  Serious: No
  Sender: FDA-Public Use
  Company Number: PHJP2015JP023600

PATIENT
  Age: 48 Year
  Sex: Male
  Weight: 78 kg

DRUGS (3)
  1. LOXONIN [Concomitant]
     Active Substance: LOXOPROFEN SODIUM
     Indication: PRODUCT USED FOR UNKNOWN INDICATION
     Dosage: UNK
     Route: 062
  2. VOLTAREN TAPE [Suspect]
     Active Substance: DICLOFENAC SODIUM
     Indication: ARTHRALGIA
     Dosage: SMALL DOSE
     Route: 061
     Dates: start: 20151012, end: 20151012
  3. EURAX [Suspect]
     Active Substance: CROTAMITON
     Indication: ARTHRALGIA
     Dosage: UNK
     Route: 061
     Dates: start: 20151012, end: 20151012

REACTIONS (4)
  - Eczema [Unknown]
  - Pyrexia [Unknown]
  - Urticaria contact [Recovering/Resolving]
  - Diarrhoea [Unknown]

NARRATIVE: CASE EVENT DATE: 20151012
